FAERS Safety Report 20322848 (Version 1)
Quarter: 2022Q1

REPORT INFORMATION
  Report Type: Report from Study
  Country: US (occurrence: US)
  Receive Date: 20220111
  Receipt Date: 20220111
  Transmission Date: 20220423
  Serious: Yes (Hospitalization, Other)
  Sender: FDA-Public Use
  Company Number: US-TAKEDA-US202030661

PATIENT
  Sex: Male

DRUGS (1)
  1. HUMAN IMMUNOGLOBULIN G\HYALURONIDASE RECOMBINANT HUMAN [Suspect]
     Active Substance: HUMAN IMMUNOGLOBULIN G\HYALURONIDASE RECOMBINANT HUMAN
     Indication: Immunodeficiency common variable
     Dosage: UNK
     Route: 065

REACTIONS (8)
  - Rhabdomyolysis [Unknown]
  - Renal impairment [Unknown]
  - Blood immunoglobulin G decreased [Unknown]
  - Blood immunoglobulin A decreased [Unknown]
  - Blood immunoglobulin M decreased [Unknown]
  - Oropharyngeal pain [Unknown]
  - Illness [Unknown]
  - Gastroenteritis viral [Unknown]
